FAERS Safety Report 9688070 (Version 2)
Quarter: 2014Q2

REPORT INFORMATION
  Report Type: Spontaneous
  Country: FR (occurrence: FR)
  Receive Date: 20131114
  Receipt Date: 20140603
  Transmission Date: 20141212
  Serious: Yes (Hospitalization, Other)
  Sender: FDA-Public Use
  Company Number: FR-VERTEX PHARMACEUTICALS INC-2013-011057

PATIENT
  Age: 52 Year
  Sex: Female
  Weight: 100 kg

DRUGS (25)
  1. INCIVO [Suspect]
     Indication: HEPATITIS C
     Dosage: 750 MG, TID
     Route: 048
     Dates: start: 20111019, end: 20120201
  2. COPEGUS [Suspect]
     Indication: HEPATITIS C
     Dosage: UNK, BID
     Route: 065
     Dates: start: 20111019
  3. COPEGUS [Suspect]
     Dosage: 400 MG, UNK
     Dates: end: 20121004
  4. PEGASYS [Suspect]
     Indication: HEPATITIS C
     Dosage: 180 ?G, QW
     Dates: start: 20111019
  5. PEGASYS [Suspect]
     Dosage: 90 ?G, QW
     Dates: end: 20121004
  6. PEGASYS [Suspect]
     Dosage: 135 ?G, QW
  7. AVLOCARDYL [Concomitant]
     Indication: PRODUCT USED FOR UNKNOWN INDICATION
     Dosage: 40 MG, UNK
     Dates: start: 20100831
  8. PRAXILENE [Concomitant]
     Indication: THROMBOANGIITIS OBLITERANS
     Dosage: 200 MG, UNK
  9. PRAXILENE [Concomitant]
     Indication: PERIPHERAL ARTERIAL OCCLUSIVE DISEASE
  10. LYRICA [Concomitant]
     Indication: PAIN
     Dosage: 125 MG, BID
     Route: 065
  11. LYRICA [Concomitant]
  12. EUPANTOL [Concomitant]
     Indication: GASTROOESOPHAGEAL REFLUX PROPHYLAXIS
     Route: 065
  13. PLAVIX [Concomitant]
     Indication: THROMBOSIS PROPHYLAXIS
     Route: 065
  14. BACLOFENE [Concomitant]
     Indication: SPINAL DISORDER
     Dosage: 10 MG, BID
     Route: 065
     Dates: start: 20120326
  15. NEORECORMON [Concomitant]
     Indication: ANAEMIA
     Route: 065
     Dates: start: 20120104, end: 20121004
  16. GRANOCYTE [Concomitant]
     Indication: LEUKOPENIA
     Route: 065
     Dates: start: 20111217, end: 20120716
  17. SPECIAFOLDINE [Concomitant]
     Indication: ANAEMIA
     Dosage: 5 MG, TID
     Route: 065
     Dates: start: 20120104, end: 201207
  18. BACLOFEN [Concomitant]
     Indication: SPINAL DISORDER
     Dosage: DOSAGE FORM: UNSPECIFIED, 4-5 A DAY
     Route: 065
     Dates: start: 20120326
  19. INEXIUM [Concomitant]
     Indication: GASTROOESOPHAGEAL REFLUX PROPHYLAXIS
     Dosage: 20 MG, QD
     Route: 065
  20. VESICARE [Concomitant]
     Indication: URINARY INCONTINENCE
     Dosage: 5 MG, QD
     Route: 065
  21. METFORMINE [Concomitant]
     Indication: DIABETES MELLITUS
     Dosage: 500 MG, UNK
     Route: 065
  22. TRAMADOL [Concomitant]
     Indication: PAIN
     Dosage: 1000 MG, UNK
     Route: 065
  23. TAVANIC [Concomitant]
     Indication: STAPHYLOCOCCAL SEPSIS
     Dosage: 500 MG, UNK
     Route: 065
     Dates: start: 20130304
  24. DALACINE [Concomitant]
     Indication: STAPHYLOCOCCAL SEPSIS
     Dosage: 600 MG, UNK
     Route: 065
  25. INIPOMP [Concomitant]
     Indication: GASTROOESOPHAGEAL REFLUX PROPHYLAXIS
     Dosage: 20 MG, UNK
     Route: 065

REACTIONS (8)
  - Peritonitis [Recovered/Resolved]
  - Hepatic cirrhosis [Recovered/Resolved]
  - Anaemia [Unknown]
  - Thrombocytopenia [Unknown]
  - Cellulitis [Recovered/Resolved]
  - Gastrointestinal haemorrhage [Recovered/Resolved]
  - Skin lesion [Recovered/Resolved]
  - Hyperthermia [Recovered/Resolved]
